FAERS Safety Report 7274986-4 (Version None)
Quarter: 2011Q1

REPORT INFORMATION
  Report Type: 
  Country: None (occurrence: None)
  Receive Date: 20110204
  Receipt Date: 20110127
  Transmission Date: 20110831
  Serious: Yes (Other)
  Sender: FDA-Public Use
  Company Number: US-ROCHE-701301

PATIENT
  Sex: Female
  Weight: 56.7 kg

DRUGS (4)
  1. ORAL CONTRACEPTIVES NOS [Concomitant]
  2. ACCUTANE [Suspect]
     Indication: ACNE
     Route: 065
     Dates: start: 19851004, end: 19851216
  3. ACCUTANE [Suspect]
     Route: 065
     Dates: start: 19860808, end: 19861210
  4. ACCUTANE [Suspect]
     Dosage: DOSE: 40 MG DAILY - ALTERNATING 80 MG
     Route: 065
     Dates: start: 19880520, end: 19880825

REACTIONS (9)
  - HYPERTRICHOSIS [None]
  - INFLAMMATORY BOWEL DISEASE [None]
  - LIP DRY [None]
  - DEPRESSION [None]
  - COLITIS ULCERATIVE [None]
  - DRY SKIN [None]
  - FISTULA [None]
  - SUICIDAL IDEATION [None]
  - INTESTINAL OBSTRUCTION [None]
